FAERS Safety Report 7712075-2 (Version None)
Quarter: 2011Q3

REPORT INFORMATION
  Report Type: 
  Country: None (occurrence: None)
  Receive Date: 20110826
  Receipt Date: 20110817
  Transmission Date: 20111222
  Serious: Yes (Hospitalization)
  Sender: FDA-Public Use
  Company Number: ES-JNJFOC-20071203494

PATIENT
  Age: 58 Year
  Sex: Female

DRUGS (7)
  1. LORAZEPAM [Concomitant]
  2. ATENOLOL [Concomitant]
  3. ACETAMINOPHEN [Suspect]
     Indication: OSTEOARTHRITIS
     Dosage: 650 MG/DAY, 4 DAYS A WEEK, FOR 4 YEARS
  4. PAROXETINE HCL [Suspect]
     Indication: PRODUCT USED FOR UNKNOWN INDICATION
     Dosage: TAKEN FOR 8 MONTHS PRIOR TO EVENT
  5. HERBAL SUPPLEMENT [Concomitant]
  6. ACETAMINOPHEN [Suspect]
  7. HYDROXYZINE [Concomitant]

REACTIONS (1)
  - LIVER INJURY [None]
